FAERS Safety Report 18634592 (Version 4)
Quarter: 2024Q2

REPORT INFORMATION
  Report Type: Spontaneous
  Country: CA (occurrence: CA)
  Receive Date: 20201218
  Receipt Date: 20240626
  Transmission Date: 20240716
  Serious: Yes (Hospitalization, Other)
  Sender: FDA-Public Use
  Company Number: NVSC2020CA333741

PATIENT
  Age: 55 Year
  Sex: Female

DRUGS (2)
  1. GILENYA [Suspect]
     Active Substance: FINGOLIMOD HYDROCHLORIDE
     Indication: Multiple sclerosis
     Dosage: UNK
     Route: 065
     Dates: start: 201401, end: 20201113
  2. TYSABRI [Suspect]
     Active Substance: NATALIZUMAB
     Indication: Product used for unknown indication
     Dosage: 1 DF (1 MONTH AGO) INFUSED (STANDARD FULL DOSE)
     Route: 065
     Dates: start: 20201119

REACTIONS (20)
  - Systemic lupus erythematosus [Recovering/Resolving]
  - Humerus fracture [Unknown]
  - Multiple sclerosis relapse [Recovering/Resolving]
  - Gait disturbance [Unknown]
  - Photopsia [Unknown]
  - Hypoaesthesia [Unknown]
  - Shock [Unknown]
  - Pancreatitis [Recovering/Resolving]
  - Progressive multifocal leukoencephalopathy [Recovering/Resolving]
  - Dysarthria [Unknown]
  - Visual impairment [Unknown]
  - Brain stem syndrome [Unknown]
  - Hemiparesis [Unknown]
  - Clumsiness [Unknown]
  - Sensory loss [Unknown]
  - Asthenia [Unknown]
  - Multiple sclerosis [Unknown]
  - JC polyomavirus test positive [Recovering/Resolving]
  - Dysphagia [Unknown]
  - Dysstasia [Unknown]

NARRATIVE: CASE EVENT DATE: 20200801
